FAERS Safety Report 6491174-X (Version None)
Quarter: 2009Q4

REPORT INFORMATION
  Report Type: 
  Country: None (occurrence: None)
  Receive Date: 20091125
  Receipt Date: 20090527
  Transmission Date: 20100525
  Serious: Yes (Other)
  Sender: FDA-Public Use
  Company Number: 2009BH009192

PATIENT
  Age: 52 Year
  Sex: Male

DRUGS (2)
  1. DIANEAL PD4, AMBU-FLEX CONTAINER [Suspect]
     Indication: PERITONEAL DIALYSIS
     Dosage: 13.5 L; EVERY DAY; IP
     Route: 033
  2. DIANEAL PD4, AMBU-FLEX CONTAINER [Suspect]
     Indication: PERITONEAL DIALYSIS
     Dosage: 1.5 L; EVERY DAY; IP
     Route: 033

REACTIONS (2)
  - DEVICE LEAKAGE [None]
  - PERITONITIS BACTERIAL [None]
